FAERS Safety Report 12212065 (Version 4)
Quarter: 2018Q4

REPORT INFORMATION
  Report Type: Spontaneous
  Country: PT (occurrence: PT)
  Receive Date: 20160325
  Receipt Date: 20181226
  Transmission Date: 20190204
  Serious: Yes (Hospitalization, Other)
  Sender: FDA-Public Use
  Company Number: PT-PFIZER INC-2016171218

PATIENT
  Sex: Male

DRUGS (4)
  1. ALPRAZOLAM. [Interacting]
     Active Substance: ALPRAZOLAM
     Indication: ANXIETY DISORDER
  2. VENLAFAXINE HCL [Interacting]
     Active Substance: VENLAFAXINE HYDROCHLORIDE
     Indication: DEPRESSION
  3. VENLAFAXINE HCL [Suspect]
     Active Substance: VENLAFAXINE HYDROCHLORIDE
     Indication: ANXIETY DISORDER
     Dosage: 75 MG, DAILY
     Route: 064
  4. ALPRAZOLAM. [Interacting]
     Active Substance: ALPRAZOLAM
     Indication: DEPRESSION
     Dosage: 0.5 MG, DAILY
     Route: 064

REACTIONS (11)
  - Dilatation ventricular [Recovered/Resolved]
  - Drug interaction [Recovered/Resolved]
  - Hepatomegaly [Recovered/Resolved]
  - Neonatal respiratory distress syndrome [Recovered/Resolved]
  - Selective eating disorder [Recovered/Resolved]
  - Tachycardia [Recovered/Resolved]
  - Ejection fraction decreased [Recovered/Resolved]
  - Maternal exposure during pregnancy [Recovered/Resolved]
  - Ventricular dysfunction [Recovered/Resolved]
  - Ultrasound antenatal screen [Unknown]
  - Mitral valve incompetence [Recovered/Resolved]
